FAERS Safety Report 24784410 (Version 1)
Quarter: 2024Q4

REPORT INFORMATION
  Report Type: Spontaneous
  Country: CN (occurrence: CN)
  Receive Date: 20241227
  Receipt Date: 20241227
  Transmission Date: 20250114
  Serious: Yes (Other)
  Sender: BAYER HEALTHCARE PHARMACEUTICALS INC.
  Company Number: CN-BAYER-2024A182986

PATIENT
  Age: 34 Year
  Sex: Female

DRUGS (3)
  1. YAZ [Suspect]
     Active Substance: DROSPIRENONE\ETHINYL ESTRADIOL
     Indication: Endometrial disorder
     Dosage: 1 DF, QD
     Route: 048
     Dates: start: 20241119, end: 20241121
  2. METRONIDAZOLE [Suspect]
     Active Substance: METRONIDAZOLE
     Indication: Antiinflammatory therapy
     Dosage: 0.2 G, BID
     Route: 048
     Dates: start: 20241119, end: 20241121
  3. Xian yi mu cao [Concomitant]
     Indication: Ovulation induction
     Dosage: 3 DF, TID
     Route: 048
     Dates: start: 20241119, end: 20241121

REACTIONS (5)
  - Henoch-Schonlein purpura [Recovering/Resolving]
  - Haemorrhage subcutaneous [Recovering/Resolving]
  - Drug eruption [Recovering/Resolving]
  - Product prescribing issue [None]
  - Product use in unapproved indication [None]

NARRATIVE: CASE EVENT DATE: 20241119
